FAERS Safety Report 8143889-5 (Version None)
Quarter: 2012Q1

REPORT INFORMATION
  Report Type: 
  Country: None (occurrence: None)
  Receive Date: 20120217
  Receipt Date: 20120206
  Transmission Date: 20120608
  Serious: Yes (Hospitalization)
  Sender: FDA-Public Use
  Company Number: JP-ELI_LILLY_AND_COMPANY-JP201202001151

PATIENT
  Sex: Female
  Weight: 43 kg

DRUGS (9)
  1. ASPIRIN [Concomitant]
     Indication: ANGINA PECTORIS
     Dosage: 100 MG, QD
     Route: 048
  2. MUCOSTA [Concomitant]
     Indication: GASTRITIS PROPHYLAXIS
     Dosage: 100 MG, QD
     Route: 048
     Dates: end: 20120206
  3. PRASUGREL HYDROCHLORIDE [Suspect]
     Indication: CORONARY ARTERY DISEASE
     Dosage: UNK, QD
     Dates: start: 20120113, end: 20120131
  4. PRAVASTATIN SODIUM [Concomitant]
     Indication: DYSLIPIDAEMIA
     Dosage: 10 MG, QD
     Route: 048
  5. ISOSORBIDE DINITRATE [Concomitant]
     Indication: ANGINA PECTORIS
     Dosage: 40 MG, QD
     Route: 062
  6. MAGNESIUM OXIDE [Concomitant]
     Indication: CONSTIPATION
     Dosage: 330 MG, TID
     Route: 048
     Dates: start: 20120131, end: 20120203
  7. CANDESARTAN CILEXETIL [Concomitant]
     Indication: HYPERTENSION
     Dosage: 4 MG, QD
     Route: 048
  8. NITRAZEPAM [Concomitant]
     Indication: INSOMNIA
     Dosage: 10 MG, QD
     Route: 048
  9. DEPAS [Concomitant]
     Indication: INSOMNIA
     Dosage: 0.5 MG, QD
     Route: 048

REACTIONS (2)
  - ECZEMA [None]
  - POST PROCEDURAL HAEMORRHAGE [None]
